FAERS Safety Report 21728991 (Version 1)
Quarter: 2022Q4

REPORT INFORMATION
  Report Type: Spontaneous
  Country: US (occurrence: None)
  Receive Date: 20221214
  Receipt Date: 20221214
  Transmission Date: 20230113
  Serious: Yes (Hospitalization)
  Sender: FDA-Public Use
  Company Number: None

PATIENT
  Age: 66 Year
  Sex: Male
  Weight: 130.6 kg

DRUGS (2)
  1. LIRAGLUTIDE [Suspect]
     Active Substance: LIRAGLUTIDE
  2. LIRAGLUTIDE [Concomitant]
     Active Substance: LIRAGLUTIDE
     Dates: start: 20221201

REACTIONS (4)
  - Dizziness [None]
  - Fall [None]
  - Skin laceration [None]
  - Blood pressure decreased [None]

NARRATIVE: CASE EVENT DATE: 20221214
